FAERS Safety Report 7123042-4 (Version None)
Quarter: 2010Q4

REPORT INFORMATION
  Report Type: 
  Country: None (occurrence: None)
  Receive Date: 20101125
  Receipt Date: 20101116
  Transmission Date: 20110411
  Serious: Yes (Other)
  Sender: FDA-Public Use
  Company Number: MX-SP-2010-06075

PATIENT
  Sex: Female

DRUGS (2)
  1. TUBERCULIN NOS [Suspect]
     Indication: TUBERCULIN TEST
     Route: 030
     Dates: start: 20100728, end: 20100728
  2. TICE BCG [Suspect]
     Indication: TUBERCULIN TEST
     Route: 030
     Dates: start: 20100728, end: 20100728

REACTIONS (7)
  - BLISTER [None]
  - INCORRECT ROUTE OF DRUG ADMINISTRATION [None]
  - INJECTION SITE ABSCESS [None]
  - INJECTION SITE ERYTHEMA [None]
  - INJECTION SITE PAIN [None]
  - INJECTION SITE ULCER [None]
  - WRONG DRUG ADMINISTERED [None]
